FAERS Safety Report 7984915-3 (Version None)
Quarter: 2011Q4

REPORT INFORMATION
  Report Type: 
  Country: None (occurrence: None)
  Receive Date: 20111214
  Receipt Date: 20111205
  Transmission Date: 20120403
  Serious: Yes (Disabling)
  Sender: FDA-Public Use
  Company Number: 1126663

PATIENT
  Age: 26 Year
  Sex: Female

DRUGS (1)
  1. METHOTREXATE [Suspect]
     Indication: ECTOPIC PREGNANCY
     Dosage: 80 MG MILLIGRAM(S), INTRAMUSCULAR
     Dates: start: 20111007, end: 20111007

REACTIONS (6)
  - DEPRESSED MOOD [None]
  - NAUSEA [None]
  - LETHARGY [None]
  - ALOPECIA [None]
  - SOMNOLENCE [None]
  - PRURITUS [None]
